FAERS Safety Report 19769348 (Version 3)
Quarter: 2021Q4

REPORT INFORMATION
  Report Type: Spontaneous
  Country: IT (occurrence: IT)
  Receive Date: 20210831
  Receipt Date: 20211202
  Transmission Date: 20220303
  Serious: Yes (Other)
  Sender: FDA-Public Use
  Company Number: IT-THERAMEX-2021000249

PATIENT
  Age: 71 Year
  Sex: Female

DRUGS (6)
  1. ALENDRONATE [Suspect]
     Active Substance: ALENDRONATE SODIUM
     Indication: Neoplasm malignant
     Dosage: ALENDRONATE (24 MONTHS)
  2. ALENDRONATE [Suspect]
     Active Substance: ALENDRONATE SODIUM
     Indication: Osteoporosis
     Dosage: UNK
     Route: 048
  3. RISEDRONATE SODIUM [Suspect]
     Active Substance: RISEDRONATE SODIUM
     Indication: Osteoporosis
     Dosage: UNK, RISEDRONATE (36 MONTHS)
  4. AMOXICILLIN [Concomitant]
     Active Substance: AMOXICILLIN
     Dosage: 3 G/DAY SARTED THREE DAYS BEFORE THE SURGERY
  5. CHLORHEXIDINE [Concomitant]
     Active Substance: CHLORHEXIDINE
     Dosage: TOPICAL ANTISEPTIC THERAPY WITH 0.2% CHLORHEXIDINE  MOUTHWASH
  6. CHLORHEXIDINE [Concomitant]
     Active Substance: CHLORHEXIDINE
     Dosage: 1% CHLORHEXIDINE GEL TARTAR ABLATION

REACTIONS (3)
  - Osteonecrosis of jaw [Recovered/Resolved]
  - Product use in unapproved indication [Unknown]
  - Surgery [Recovered/Resolved]
